FAERS Safety Report 5746348-X (Version None)
Quarter: 2008Q2

REPORT INFORMATION
  Report Type: 
  Country: None (occurrence: None)
  Receive Date: 20080522
  Receipt Date: 20080513
  Transmission Date: 20081010
  Serious: Yes (Hospitalization)
  Sender: FDA-Public Use
  Company Number: PHFR2008IE01407

PATIENT
  Age: 63 Year
  Sex: Male

DRUGS (6)
  1. CLOZARIL [Suspect]
     Indication: SCHIZOPHRENIA
     Dosage: 75MG MANE, 125MG NOCTE
     Route: 048
     Dates: start: 19940803
  2. LANSOPRAZOLE [Concomitant]
     Route: 065
  3. ASPIRIN [Concomitant]
     Route: 065
  4. PRAVASTATIN [Concomitant]
     Route: 065
  5. DUPHALAC /NET/ [Concomitant]
     Route: 065
  6. FYBOGEL [Concomitant]
     Route: 065

REACTIONS (2)
  - RENAL FAILURE ACUTE [None]
  - SMALL INTESTINAL OBSTRUCTION [None]
